FAERS Safety Report 18603118 (Version 1)
Quarter: 2020Q4

REPORT INFORMATION
  Report Type: Spontaneous
  Country: CH (occurrence: CH)
  Receive Date: 20201210
  Receipt Date: 20201210
  Transmission Date: 20210114
  Serious: Yes (Life-Threatening, Congenital Anomaly)
  Sender: FDA-Public Use
  Company Number: CH-JNJFOC-20201150568

PATIENT
  Age: 0 Year
  Sex: Female
  Weight: 2.87 kg

DRUGS (5)
  1. STELARA [Suspect]
     Active Substance: USTEKINUMAB
     Indication: CROHN^S DISEASE
     Dosage: STELARA  WURDE IN DER 24. SSW SISTIERT
     Route: 064
  2. TIROSINT [Suspect]
     Active Substance: LEVOTHYROXINE SODIUM
     Indication: THYROIDECTOMY
     Route: 064
  3. METFORMIN [Suspect]
     Active Substance: METFORMIN HYDROCHLORIDE
     Indication: PRODUCT USED FOR UNKNOWN INDICATION
     Route: 064
  4. IMUREK [Suspect]
     Active Substance: AZATHIOPRINE
     Indication: CROHN^S DISEASE
     Route: 065
  5. URSOFALK [Suspect]
     Active Substance: URSODIOL
     Indication: CHOLELITHIASIS
     Route: 064

REACTIONS (3)
  - Ductus arteriosus stenosis foetal [Not Recovered/Not Resolved]
  - Right ventricular hypertrophy [Unknown]
  - Foetal exposure during pregnancy [Recovered/Resolved]

NARRATIVE: CASE EVENT DATE: 2020
